FAERS Safety Report 5814155-5 (Version None)
Quarter: 2008Q3

REPORT INFORMATION
  Report Type: 
  Country: None (occurrence: None)
  Receive Date: 20080717
  Receipt Date: 20080710
  Transmission Date: 20090109
  Serious: Yes (Disabling, Other)
  Sender: FDA-Public Use
  Company Number: CA-PFIZER INC-2008052625

PATIENT
  Age: 55 Year
  Sex: Female

DRUGS (9)
  1. LIPITOR [Suspect]
     Route: 048
  2. APO-DILTIAZ [Concomitant]
     Route: 048
  3. DIOVAN HCT [Concomitant]
     Dosage: TEXT:160MG VALSARTAN/25MG HYDROCHLOROTHIAZIDE
     Route: 048
  4. SYNTHROID [Concomitant]
     Route: 048
  5. APO-FUROSEMIDE [Concomitant]
     Route: 048
  6. APO-AMITRIPTYLINE [Concomitant]
     Route: 048
  7. SULFASALAZINE [Concomitant]
     Route: 048
  8. TRAMADOL HYDROCHLORIDE AND ACETAMINOPHEN [Concomitant]
     Indication: PAIN
     Dosage: TEXT:37.5-325 MG-FREQ:AS NEEDED
     Route: 048
  9. PLAVIX [Concomitant]
     Route: 048

REACTIONS (9)
  - CHEST PAIN [None]
  - CONSTIPATION [None]
  - DYSPNOEA [None]
  - ERYTHEMA [None]
  - HALLUCINATION [None]
  - INSOMNIA [None]
  - NERVOUSNESS [None]
  - RESTLESSNESS [None]
  - TREMOR [None]
